FAERS Safety Report 25088714 (Version 1)
Quarter: 2025Q1

REPORT INFORMATION
  Report Type: Spontaneous
  Country: US (occurrence: US)
  Receive Date: 20250318
  Receipt Date: 20250318
  Transmission Date: 20250408
  Serious: Yes (Life-Threatening, Hospitalization)
  Sender: MYLAN
  Company Number: US-MYLANLABS-2025M1021733

PATIENT
  Age: 63 Year
  Sex: Male

DRUGS (2)
  1. EPOPROSTENOL [Suspect]
     Active Substance: EPOPROSTENOL
     Indication: Pulmonary hypertension
  2. MILRINONE [Suspect]
     Active Substance: MILRINONE
     Indication: Pulmonary hypertension

REACTIONS (1)
  - Drug ineffective [Unknown]
